FAERS Safety Report 6603612-X (Version None)
Quarter: 2010Q1

REPORT INFORMATION
  Report Type: 
  Country: None (occurrence: None)
  Receive Date: 20100226
  Receipt Date: 20091125
  Transmission Date: 20100710
  Serious: No
  Sender: FDA-Public Use
  Company Number: A0832021A

PATIENT
  Age: 29 Year
  Sex: Male

DRUGS (9)
  1. VALTREX [Suspect]
     Indication: GENITAL HERPES
     Dosage: 1G PER DAY
     Route: 048
     Dates: start: 20091001
  2. FENTANYL [Concomitant]
  3. ALPRAZOLAM [Concomitant]
  4. VALIUM [Concomitant]
  5. 5-HTP [Concomitant]
  6. FISH OIL [Concomitant]
  7. M.V.I. [Concomitant]
  8. VITAMIN D3 [Concomitant]
  9. DHEA [Concomitant]

REACTIONS (1)
  - TESTICULAR PAIN [None]
